FAERS Safety Report 6576658-8 (Version None)
Quarter: 2010Q1

REPORT INFORMATION
  Report Type: 
  Country: None (occurrence: None)
  Receive Date: 20100210
  Receipt Date: 20100201
  Transmission Date: 20100710
  Serious: Yes (Other)
  Sender: FDA-Public Use
  Company Number: DE-PFIZER INC-2009279406

PATIENT
  Age: 71 Year
  Sex: Female
  Weight: 60 kg

DRUGS (5)
  1. AROMASIN [Suspect]
     Indication: BREAST CANCER FEMALE
     Dosage: 25 MG, 1X/DAY
     Route: 048
     Dates: start: 20060801, end: 20091201
  2. IODINE [Concomitant]
  3. EFFORTIL [Concomitant]
     Indication: HYPOTENSION
     Dosage: UNK
  4. CALCIUM [Concomitant]
  5. VITAMIN D [Concomitant]

REACTIONS (5)
  - ALOPECIA [None]
  - ANXIETY [None]
  - FATIGUE [None]
  - ONYCHOCLASIS [None]
  - PANIC ATTACK [None]
